FAERS Safety Report 26143967 (Version 1)
Quarter: 2025Q4

REPORT INFORMATION
  Report Type: Report from Study
  Country: US (occurrence: US)
  Receive Date: 20251211
  Receipt Date: 20251211
  Transmission Date: 20260118
  Serious: Yes (Other)
  Sender: ROCHE
  Company Number: US-ROCHE-10000454946

PATIENT
  Age: 34 Year
  Sex: Female

DRUGS (17)
  1. RITUXAN [Suspect]
     Active Substance: RITUXIMAB
     Indication: Iron deficiency anaemia
     Dosage: INFUSE 739MG IV Q 7 DAYS FOR 4 DOSES ?4 DOSES + 1 RF - RX WAS MISSING THE CYCLE LENGTH.
     Route: 042
  2. RITUXAN [Suspect]
     Active Substance: RITUXIMAB
     Indication: Microscopic polyangiitis
  3. RITUXAN [Suspect]
     Active Substance: RITUXIMAB
     Indication: Pemphigus
  4. RITUXAN [Suspect]
     Active Substance: RITUXIMAB
     Indication: Granulomatosis with polyangiitis
  5. RITUXAN [Suspect]
     Active Substance: RITUXIMAB
     Indication: Joint injury
  6. RITUXAN [Suspect]
     Active Substance: RITUXIMAB
     Indication: Rheumatoid arthritis
  7. RITUXAN [Suspect]
     Active Substance: RITUXIMAB
     Indication: Granulomatosis with polyangiitis
  8. RITUXAN [Suspect]
     Active Substance: RITUXIMAB
     Indication: Mature B-cell type acute leukaemia
  9. RITUXAN [Suspect]
     Active Substance: RITUXIMAB
     Indication: Burkitt^s leukaemia
  10. RITUXAN [Suspect]
     Active Substance: RITUXIMAB
     Indication: Burkitt^s lymphoma
  11. RITUXAN [Suspect]
     Active Substance: RITUXIMAB
     Indication: Drug intolerance
  12. RITUXAN [Suspect]
     Active Substance: RITUXIMAB
     Indication: Diffuse large B-cell lymphoma
  13. RITUXAN [Suspect]
     Active Substance: RITUXIMAB
     Indication: Chronic lymphocytic leukaemia refractory
  14. RITUXAN [Suspect]
     Active Substance: RITUXIMAB
     Indication: B-cell lymphoma stage III
  15. RITUXAN [Suspect]
     Active Substance: RITUXIMAB
     Indication: B-cell lymphoma stage IV
  16. RITUXAN [Suspect]
     Active Substance: RITUXIMAB
     Indication: Follicular lymphoma
  17. RITUXAN [Suspect]
     Active Substance: RITUXIMAB
     Indication: Follicular lymphoma

REACTIONS (3)
  - Off label use [Unknown]
  - Product prescribing error [Unknown]
  - Immune thrombocytopenia [Unknown]
